FAERS Safety Report 4764981-9 (Version None)
Quarter: 2005Q3

REPORT INFORMATION
  Report Type: 
  Country: None (occurrence: None)
  Receive Date: 20050907
  Receipt Date: 20050829
  Transmission Date: 20060218
  Serious: Yes (Other)
  Sender: FDA-Public Use
  Company Number: 8010845

PATIENT
  Age: 43 Year
  Sex: Female
  Weight: 45 kg

DRUGS (4)
  1. KEPPRA [Suspect]
     Indication: COMPLEX PARTIAL SEIZURES
     Dosage: 3000 MG/D PO
     Route: 048
     Dates: start: 20011005
  2. DILANTIN [Concomitant]
  3. NEURONTIN [Concomitant]
  4. IBUPROFEN [Concomitant]

REACTIONS (1)
  - LEUKOPENIA [None]
